FAERS Safety Report 8185299-0 (Version None)
Quarter: 2012Q1

REPORT INFORMATION
  Report Type: 
  Country: None (occurrence: None)
  Receive Date: 20120305
  Receipt Date: 20120227
  Transmission Date: 20120608
  Serious: Yes (Other)
  Sender: FDA-Public Use
  Company Number: PHHY2012BR017169

PATIENT
  Age: 45 Year
  Sex: Female

DRUGS (3)
  1. HORMONES NOS [Concomitant]
  2. CALCIUM [Concomitant]
     Route: 048
  3. ZOLEDRONOC ACID [Suspect]
     Indication: OSTEOPENIA
     Dosage: 5 MG/100 ML
     Route: 042
     Dates: start: 20120216

REACTIONS (5)
  - GAIT DISTURBANCE [None]
  - NEPHROLITHIASIS [None]
  - LEUKOCYTOSIS [None]
  - ARTHRALGIA [None]
  - PAIN IN EXTREMITY [None]
